FAERS Safety Report 8048104-9 (Version None)
Quarter: 2012Q1

REPORT INFORMATION
  Report Type: 
  Country: None (occurrence: None)
  Receive Date: 20120112
  Receipt Date: 20120112
  Transmission Date: 20120608
  Serious: Yes (Other)
  Sender: FDA-Public Use
  Company Number: None

PATIENT
  Age: 68 Year
  Sex: Male
  Weight: 108.2 kg

DRUGS (5)
  1. HYDROCORTISONE [Concomitant]
  2. KETOCONAZOLE [Suspect]
     Indication: PROSTATE CANCER
     Dosage: 400MG TID
     Dates: start: 20111104, end: 20111229
  3. DUTASTERIDE [Concomitant]
  4. ELIGARD [Concomitant]
  5. K-PHOS NEUTRAL [Concomitant]

REACTIONS (7)
  - TOXICITY TO VARIOUS AGENTS [None]
  - FATIGUE [None]
  - HYPOPHOSPHATAEMIA [None]
  - ALANINE AMINOTRANSFERASE INCREASED [None]
  - ASPARTATE AMINOTRANSFERASE INCREASED [None]
  - DIARRHOEA [None]
  - DYSPEPSIA [None]
